FAERS Safety Report 7538495-7 (Version None)
Quarter: 2011Q2

REPORT INFORMATION
  Report Type: 
  Country: None (occurrence: None)
  Receive Date: 20110609
  Receipt Date: 20110527
  Transmission Date: 20111010
  Serious: Yes (Other)
  Sender: FDA-Public Use
  Company Number: GB-MYLANLABS-2010S1004502

PATIENT
  Age: 40 Year
  Sex: Male

DRUGS (4)
  1. AVODART [Suspect]
     Indication: ALOPECIA
     Dates: start: 20080101, end: 20090101
  2. FINASTERIDE [Suspect]
     Route: 048
     Dates: start: 20060101
  3. FINASTERIDE [Suspect]
     Indication: ALOPECIA
     Route: 048
     Dates: start: 19980101, end: 20040101
  4. FINASTERIDE [Suspect]
     Route: 048
     Dates: start: 20040101

REACTIONS (6)
  - SKIN ATROPHY [None]
  - DYSGEUSIA [None]
  - DARK CIRCLES UNDER EYES [None]
  - WRONG TECHNIQUE IN DRUG USAGE PROCESS [None]
  - OVERDOSE [None]
  - INTENTIONAL DRUG MISUSE [None]
